FAERS Safety Report 8902085 (Version 1)
Quarter: 2012Q4

REPORT INFORMATION
  Report Type: 
  Country: BR (occurrence: BR)
  Receive Date: 20121112
  Receipt Date: 20121112
  Transmission Date: 20130627
  Serious: Yes (Other)
  Sender: FDA-Public Use
  Company Number: PHHY2012BR103929

PATIENT
  Sex: Male

DRUGS (7)
  1. DIOVAN [Suspect]
  2. VICOG [Concomitant]
     Dosage: 3 DF, per day
     Route: 048
  3. COVERSYL PLUS                      /01421201/ [Concomitant]
     Dosage: 1 DF, per day
     Route: 048
  4. ATENOLOL [Concomitant]
     Dosage: 0.5 DF, UNK
     Route: 048
  5. VALERIAN [Concomitant]
     Dosage: 2 DF, pero day
     Route: 048
  6. ASPIRINA PREVENT [Concomitant]
     Dosage: 1 DF, per day
     Route: 048
  7. ROSUVASTATIN [Concomitant]
     Indication: BLOOD CHOLESTEROL
     Dosage: 1 DF, per day
     Route: 048

REACTIONS (1)
  - Infarction [Recovered/Resolved]
